FAERS Safety Report 23444964 (Version 1)
Quarter: 2024Q1

REPORT INFORMATION
  Report Type: Spontaneous
  Country: CN (occurrence: CN)
  Receive Date: 20240125
  Receipt Date: 20240125
  Transmission Date: 20240409
  Serious: Yes (Other)
  Sender: FDA-Public Use
  Company Number: CN-BoehringerIngelheim-2024-BI-003813

PATIENT
  Age: 74 Year
  Sex: Female
  Weight: 67 kg

DRUGS (2)
  1. ALTEPLASE [Suspect]
     Active Substance: ALTEPLASE
     Indication: Cerebral infarction
     Dosage: AT 0.9MG/KG
     Route: 042
     Dates: start: 20231207, end: 20231207
  2. ALTEPLASE [Suspect]
     Active Substance: ALTEPLASE
     Dosage: PUMPED AT 0.9MG/MINUTE
     Route: 042
     Dates: start: 20231207, end: 20231207

REACTIONS (4)
  - Malaise [Recovering/Resolving]
  - Swollen tongue [Recovering/Resolving]
  - Throat tightness [Recovering/Resolving]
  - Lividity [Recovering/Resolving]

NARRATIVE: CASE EVENT DATE: 20231207
